FAERS Safety Report 18518814 (Version 3)
Quarter: 2022Q1

REPORT INFORMATION
  Report Type: Report from Study
  Country: AR (occurrence: AR)
  Receive Date: 20201118
  Receipt Date: 20220328
  Transmission Date: 20220423
  Serious: Yes (Hospitalization, Other)
  Sender: FDA-Public Use
  Company Number: AR-TAKEDA-AR202026003

PATIENT
  Sex: Female
  Weight: 89 kg

DRUGS (3)
  1. VELAGLUCERASE ALFA [Suspect]
     Active Substance: VELAGLUCERASE ALFA
     Indication: Gaucher^s disease
     Dosage: 60 MILLIGRAM/KILOGRAM, 1X/2WKS
     Route: 042
  2. VELAGLUCERASE ALFA [Suspect]
     Active Substance: VELAGLUCERASE ALFA
     Dosage: 60 MILLIGRAM/KILOGRAM, 1X/2WKS
     Route: 042
  3. VELAGLUCERASE ALFA [Suspect]
     Active Substance: VELAGLUCERASE ALFA
     Dosage: 60 MILLIGRAM/KILOGRAM, 1/WEEK
     Route: 042
     Dates: start: 20131230

REACTIONS (9)
  - Haemorrhoidal haemorrhage [Recovering/Resolving]
  - Adverse event [Recovering/Resolving]
  - Neck mass [Unknown]
  - Haematochezia [Recovering/Resolving]
  - Hand fracture [Recovering/Resolving]
  - Limb injury [Recovering/Resolving]
  - Biopsy [Unknown]
  - Malaise [Recovering/Resolving]
  - Faeces discoloured [Recovering/Resolving]
